FAERS Safety Report 6389511-X (Version None)
Quarter: 2009Q4

REPORT INFORMATION
  Report Type: 
  Country: None (occurrence: None)
  Receive Date: 20091006
  Receipt Date: 20090924
  Transmission Date: 20100525
  Serious: Yes (Hospitalization)
  Sender: FDA-Public Use
  Company Number: FR-ASTRAZENECA-2009SE15202

PATIENT
  Age: 71 Year
  Sex: Male

DRUGS (10)
  1. TENORMIN [Suspect]
     Route: 048
     Dates: end: 20090501
  2. CORDARONE [Interacting]
     Route: 048
     Dates: end: 20090501
  3. NEXIUM [Concomitant]
     Route: 048
  4. AMLOR [Concomitant]
     Route: 048
  5. KARDEGIC [Concomitant]
     Route: 048
  6. TAHOR [Concomitant]
     Route: 048
  7. COVERSYL [Concomitant]
     Route: 048
  8. DIFFU-K [Concomitant]
     Route: 048
  9. LASILIX [Concomitant]
  10. NOVORAPID [Concomitant]

REACTIONS (9)
  - AORTIC ARTERIOSCLEROSIS [None]
  - BRADYCARDIA [None]
  - DRUG INTERACTION [None]
  - ELECTROCARDIOGRAM ST SEGMENT ELEVATION [None]
  - ELECTROCARDIOGRAM T WAVE INVERSION [None]
  - LEFT VENTRICULAR HYPERTROPHY [None]
  - LOSS OF CONSCIOUSNESS [None]
  - MALAISE [None]
  - PULMONARY ARTERIAL HYPERTENSION [None]
